FAERS Safety Report 4673193-9 (Version None)
Quarter: 2005Q2

REPORT INFORMATION
  Report Type: 
  Country: None (occurrence: None)
  Receive Date: 20050525
  Receipt Date: 20040504
  Transmission Date: 20051028
  Serious: No
  Sender: FDA-Public Use
  Company Number: US-GLAXOSMITHKLINE-A0509430A

PATIENT
  Age: 77 Year
  Sex: Female

DRUGS (5)
  1. BACTROBAN [Suspect]
     Indication: SKIN INFECTION
     Route: 061
     Dates: start: 20040502
  2. ZITHROMAX [Concomitant]
  3. TENORMIN [Concomitant]
  4. PREMARIN [Concomitant]
  5. ASPIRIN [Concomitant]

REACTIONS (2)
  - APPLICATION SITE DESQUAMATION [None]
  - BLISTER [None]
